FAERS Safety Report 5255549-9 (Version None)
Quarter: 2007Q1

REPORT INFORMATION
  Report Type: 
  Country: None (occurrence: None)
  Receive Date: 20070305
  Receipt Date: 20070222
  Transmission Date: 20070707
  Serious: Yes (Life-Threatening, Other)
  Sender: FDA-Public Use
  Company Number: HQWYE478224OCT06

PATIENT
  Sex: Male
  Weight: 77 kg

DRUGS (7)
  1. MYLOTARG [Suspect]
     Indication: ACUTE MYELOID LEUKAEMIA
     Route: 041
     Dates: start: 20060920, end: 20060920
  2. GASTER [Concomitant]
     Indication: PROPHYLAXIS
     Route: 048
     Dates: start: 20060710
  3. ZOLPIDEM TARTRATE [Concomitant]
     Indication: INSOMNIA
     Route: 048
     Dates: start: 20060831
  4. BAKTAR [Concomitant]
     Indication: PROPHYLAXIS
     Dosage: UNKNOWN DOSE/WEEK
     Route: 048
     Dates: start: 20060710
  5. MUCOSTA [Concomitant]
     Indication: PROPHYLAXIS
     Route: 048
     Dates: start: 20060710
  6. ETODOLAC [Concomitant]
     Route: 048
     Dates: start: 20060710
  7. PRORENAL [Concomitant]
     Route: 048
     Dates: start: 20060710

REACTIONS (8)
  - BLAST CELL COUNT INCREASED [None]
  - BLOOD CREATINE PHOSPHOKINASE INCREASED [None]
  - BLOOD LACTATE DEHYDROGENASE INCREASED [None]
  - NEUTROPHIL COUNT DECREASED [None]
  - PERFORMANCE STATUS DECREASED [None]
  - PNEUMONIA [None]
  - PYREXIA [None]
  - WHITE BLOOD CELL COUNT INCREASED [None]
